FAERS Safety Report 21438755 (Version 1)
Quarter: 2022Q4

REPORT INFORMATION
  Report Type: Spontaneous
  Country: TH (occurrence: TH)
  Receive Date: 20221011
  Receipt Date: 20221011
  Transmission Date: 20230113
  Serious: Yes (Hospitalization)
  Sender: FDA-Public Use
  Company Number: TH-BoehringerIngelheim-2022-BI-196539

PATIENT
  Age: 85 Year
  Sex: Female

DRUGS (1)
  1. OFEV [Suspect]
     Active Substance: NINTEDANIB
     Indication: Systemic sclerosis pulmonary
     Dosage: OFEV 1 CAP BID VIA ORAL
     Route: 048
     Dates: start: 202209, end: 20221009

REACTIONS (4)
  - Weight decreased [Unknown]
  - Aspartate aminotransferase increased [Unknown]
  - Faeces discoloured [Unknown]
  - Decreased appetite [Unknown]

NARRATIVE: CASE EVENT DATE: 20220901
